FAERS Safety Report 9431456 (Version 1)
Quarter: 2013Q3

REPORT INFORMATION
  Report Type: Spontaneous
  Country: IT (occurrence: IT)
  Receive Date: 20130730
  Receipt Date: 20130730
  Transmission Date: 20140515
  Serious: Yes (Death, Life-Threatening)
  Sender: FDA-Public Use
  Company Number: IT-TEVA-422313USA

PATIENT
  Age: 64 Year
  Sex: Male

DRUGS (14)
  1. BENDAMUSTINE [Suspect]
     Indication: PLASMA CELL MYELOMA
  2. BENDAMUSTINE [Suspect]
  3. BENDAMUSTINE [Suspect]
  4. BORTEZOMIB [Suspect]
     Indication: PLASMA CELL MYELOMA
  5. BORTEZOMIB [Suspect]
  6. BORTEZOMIB [Suspect]
  7. DEXAMETHASONE [Suspect]
     Indication: PLASMA CELL MYELOMA
  8. DEXAMETHASONE [Suspect]
  9. DEXAMETHASONE [Suspect]
  10. MELPHALAN [Concomitant]
     Indication: PLASMA CELL MYELOMA
  11. METILPREDNISOLONE [Concomitant]
     Indication: PLASMA CELL MYELOMA
  12. METILPREDNISOLONE [Concomitant]
     Indication: CHEMOTHERAPY
  13. BORTEZOMIB [Concomitant]
     Indication: PLASMA CELL MYELOMA
  14. BORTEZOMIB [Concomitant]
     Indication: CHEMOTHERAPY

REACTIONS (4)
  - Death [Fatal]
  - Neutropenia [Unknown]
  - Thrombocytopenia [Unknown]
  - Drug ineffective [Unknown]
